FAERS Safety Report 6983138-4 (Version None)
Quarter: 2010Q3

REPORT INFORMATION
  Report Type: 
  Country: None (occurrence: None)
  Receive Date: 20100910
  Receipt Date: 20100826
  Transmission Date: 20110219
  Serious: Yes (Other)
  Sender: FDA-Public Use
  Company Number: AMAG201000338

PATIENT
  Age: 52 Year
  Sex: Male
  Weight: 122 kg

DRUGS (14)
  1. FERAHEME [Suspect]
     Indication: ANAEMIA OF CHRONIC DISEASE
     Dosage: 510 MG, SINGLE, INTRAVENOUS
     Route: 042
     Dates: start: 20100813, end: 20100813
  2. FERAHEME [Suspect]
     Indication: IRON DEFICIENCY ANAEMIA
     Dosage: 510 MG, SINGLE, INTRAVENOUS
     Route: 042
     Dates: start: 20100813, end: 20100813
  3. ALBUTEROL (SALBUTAMOL SULFATE) [Concomitant]
  4. ASPIRIN [Concomitant]
  5. BECONASE AQUA (BECLOMETASONE DIPROPIONATE0 [Concomitant]
  6. COZAAR [Concomitant]
  7. CARDIZEM [Concomitant]
  8. HYDRALAZINE HCL [Concomitant]
  9. LASIX [Concomitant]
  10. MAGNESIUM OXIDE (MAGNESIUM OXIDE) [Concomitant]
  11. METANX (CALCIUM MEFOLINATE, PYRIDOXINE HYDROCHLORIDE, VITAMIN B12 NOS) [Concomitant]
  12. INSULIN NOVOFINE (INSULIN) [Concomitant]
  13. RENVELA [Concomitant]
  14. OXYGEN (OXYGEN), [Concomitant]

REACTIONS (4)
  - DYSPNOEA [None]
  - FEELING ABNORMAL [None]
  - HYPOTENSION [None]
  - OXYGEN SATURATION DECREASED [None]
